FAERS Safety Report 19892890 (Version 3)
Quarter: 2021Q4

REPORT INFORMATION
  Report Type: Spontaneous
  Country: PL (occurrence: PL)
  Receive Date: 20210928
  Receipt Date: 20211122
  Transmission Date: 20220303
  Serious: Yes (Death, Hospitalization, Other)
  Sender: FDA-Public Use
  Company Number: PL-GLAXOSMITHKLINE-PL2021EME106308

PATIENT
  Age: 75 Year
  Sex: Male

DRUGS (16)
  1. OMEPRAZOLE [Suspect]
     Active Substance: OMEPRAZOLE
     Indication: Product used for unknown indication
     Dosage: 20 MILLIGRAM, QD (TABLET ON EMPTY STOMACH)
  2. ATORVASTATIN [Suspect]
     Active Substance: ATORVASTATIN
     Indication: Product used for unknown indication
     Dosage: 10 MILLIGRAM, QD (IN THE EVENING)
  3. ASPIRIN [Suspect]
     Active Substance: ASPIRIN
     Indication: Product used for unknown indication
     Dosage: 75 MILLIGRAM
  4. CLOPIDOGREL [Suspect]
     Active Substance: CLOPIDOGREL BISULFATE
     Indication: Product used for unknown indication
     Dosage: UNK QD
     Dates: end: 20191127
  5. TORSEMIDE [Suspect]
     Active Substance: TORSEMIDE
     Indication: Product used for unknown indication
     Dosage: 10 MILLIGRAM, QD (IN THE MORNING)
  6. ALLOPURINOL [Suspect]
     Active Substance: ALLOPURINOL
     Indication: Product used for unknown indication
     Dosage: 100 MILLIGRAM, QD (QD IN THE MORNING)
  7. ALLOPURINOL [Suspect]
     Active Substance: ALLOPURINOL
     Dosage: 300 MILLIGRAM, QD
  8. RAMIPRIL [Suspect]
     Active Substance: RAMIPRIL
     Indication: Product used for unknown indication
     Dosage: 5 MILLIGRAM, QD (2.5 MG, BID (1 TABLET (2.5MG) IN THE MORNING AND 1
  9. LEVOFLOXACIN [Suspect]
     Active Substance: LEVOFLOXACIN
     Indication: Infective exacerbation of chronic obstructive airways disease
     Dosage: UNK
     Route: 017
  10. PANTOPRAZOLE SODIUM [Suspect]
     Active Substance: PANTOPRAZOLE SODIUM
     Indication: Product used for unknown indication
     Dosage: 20 MILLIGRAM, QD (QD IN THE MORNING)
  11. PANTOPRAZOLE SODIUM [Suspect]
     Active Substance: PANTOPRAZOLE SODIUM
     Dosage: 10 MILLIGRAM, QD  (IN THE MORNING)
  12. SACUBITRIL\VALSARTAN [Suspect]
     Active Substance: SACUBITRIL\VALSARTAN
     Indication: Product used for unknown indication
     Dosage: UNK, BID 24/26 MG
  13. BISOPROLOL [Suspect]
     Active Substance: BISOPROLOL
     Indication: Product used for unknown indication
     Dosage: 1.88 MILLIGRAM, QD 1.875 MG, QD (1X1.5 TABLET IN THE MORNING
  14. BISOPROLOL [Suspect]
     Active Substance: BISOPROLOL
     Dosage: 1.25 MILLIGRAM, QD
  15. ESOMEPRAZOLE [Suspect]
     Active Substance: ESOMEPRAZOLE
     Indication: Product used for unknown indication
     Dosage: 80 MILLIGRAM, QD 40 MG, BID, (1X1 TABLET IN THE MORNING ON THE EMPTY STOMACH)
  16. AMOXICILLIN [Suspect]
     Active Substance: AMOXICILLIN
     Indication: Product used for unknown indication
     Dosage: 2 GRAM, QD (1 G, BID)

REACTIONS (47)
  - COVID-19 pneumonia [Fatal]
  - Ventricular tachycardia [Unknown]
  - Chronic kidney disease [Unknown]
  - Normocytic anaemia [Unknown]
  - Blood glucose increased [Unknown]
  - Inferior vena cava dilatation [Unknown]
  - Respiratory tract infection [Unknown]
  - Hiatus hernia [Unknown]
  - Skin ulcer [Recovered/Resolved]
  - Helicobacter test positive [Unknown]
  - Pulmonary vascular disorder [Unknown]
  - Eye injury [Unknown]
  - Gastritis erosive [Unknown]
  - Coronary artery disease [Unknown]
  - Cardiac aneurysm [Unknown]
  - Infective exacerbation of chronic obstructive airways disease [Unknown]
  - Cataract [Unknown]
  - Asthenia [Unknown]
  - Ventricular enlargement [Unknown]
  - Chest discomfort [Unknown]
  - Respiratory disorder [Unknown]
  - Dyspnoea [Unknown]
  - Gastritis [Unknown]
  - Diarrhoea [Unknown]
  - Type 2 diabetes mellitus [Unknown]
  - Occult blood [Unknown]
  - Exercise tolerance decreased [Unknown]
  - Oedema peripheral [Recovered/Resolved]
  - Cardiac failure [Unknown]
  - Pulmonary hypertension [Unknown]
  - Duodenitis [Unknown]
  - Productive cough [Unknown]
  - Systolic dysfunction [Unknown]
  - Ventricular arrhythmia [Unknown]
  - Coronary artery stenosis [Unknown]
  - Mitral valve incompetence [Unknown]
  - Degenerative mitral valve disease [Unknown]
  - Atrial fibrillation [Unknown]
  - Peripheral venous disease [Recovered/Resolved]
  - Nicotine dependence [Unknown]
  - Heart rate irregular [Unknown]
  - Ventricular hypokinesia [Unknown]
  - Melaena [Unknown]
  - Angina pectoris [Recovered/Resolved]
  - Cardiac disorder [Unknown]
  - Blood pressure systolic decreased [Unknown]
  - Wrong technique in product usage process [Unknown]

NARRATIVE: CASE EVENT DATE: 20180601
